FAERS Safety Report 24671903 (Version 1)
Quarter: 2024Q4

REPORT INFORMATION
  Report Type: Spontaneous
  Country: FR (occurrence: FR)
  Receive Date: 20241127
  Receipt Date: 20241127
  Transmission Date: 20250115
  Serious: Yes (Hospitalization)
  Sender: TEVA
  Company Number: None

PATIENT
  Age: 60 Year
  Sex: Female
  Weight: 53 kg

DRUGS (3)
  1. DILTIAZEM [Suspect]
     Active Substance: DILTIAZEM
     Indication: Myocardial ischaemia
     Dosage: DILTIAZEM HYDROCHLORIDE
     Route: 048
     Dates: start: 20230331, end: 20230405
  2. SOTALOL HYDROCHLORIDE [Concomitant]
     Active Substance: SOTALOL HYDROCHLORIDE
     Indication: Myocardial ischaemia
     Dosage: 80-0-40; SOTALOL (HYDROCHLORIDE)
     Route: 048
     Dates: start: 20230201, end: 20230331
  3. DILTIAZEM HYDROCHLORIDE [Suspect]
     Active Substance: DILTIAZEM HYDROCHLORIDE
     Indication: Myocardial ischaemia
     Dosage: BI TILDIEM L.P. COATED PROLONGED-RELEASE TABLET
     Route: 048
     Dates: start: 20230405, end: 20230409

REACTIONS (1)
  - Drug reaction with eosinophilia and systemic symptoms [Recovered/Resolved]

NARRATIVE: CASE EVENT DATE: 20230407
